FAERS Safety Report 5226242-3 (Version None)
Quarter: 2007Q1

REPORT INFORMATION
  Report Type: 
  Country: None (occurrence: None)
  Receive Date: 20070129
  Receipt Date: 20070115
  Transmission Date: 20070707
  Serious: Yes (Disabling)
  Sender: FDA-Public Use
  Company Number: DEWYE620122NOV06

PATIENT
  Age: 67 Year
  Sex: Female

DRUGS (1)
  1. CLIMOPAX (CONJUGATED ESTROGENS/MEDROXYPROGESTERONE ACETATE, TABLET, 0) [Suspect]
     Indication: MENOPAUSAL SYMPTOMS
     Dosage: 0.625 MG/2.5 MG; ORAL
     Route: 048
     Dates: start: 20000717, end: 20061114

REACTIONS (1)
  - BREAST CANCER METASTATIC [None]
